FAERS Safety Report 6821976-9 (Version None)
Quarter: 2010Q2

REPORT INFORMATION
  Report Type: 
  Country: None (occurrence: None)
  Receive Date: 20100318
  Receipt Date: 20100318
  Transmission Date: 20101027
  Serious: Yes (Other)
  Sender: FDA-Public Use
  Company Number: None

PATIENT
  Age: 13 Year
  Sex: Male
  Weight: 55.9 kg

DRUGS (2)
  1. GALLIUM CITRATE GA-67 INJ [Suspect]
     Indication: SCAN GALLIUM
     Dosage: 6.8 MCI ONCE I.V. INJECTION
     Route: 042
     Dates: start: 20070510
  2. GALLIUM CITRATE GA-67 INJ [Suspect]
     Indication: SCAN GALLIUM
     Dosage: 8.2 MCI ONCE I.V. INJECTION
     Route: 042
     Dates: start: 20070704

REACTIONS (1)
  - RADIATION OVERDOSE [None]
